FAERS Safety Report 11403825 (Version 1)
Quarter: 2015Q3

REPORT INFORMATION
  Report Type: Spontaneous
  Country: US (occurrence: US)
  Receive Date: 20150821
  Receipt Date: 20150821
  Transmission Date: 20151125
  Serious: Yes (Other)
  Sender: FDA-Public Use
  Company Number: US-ROCHE-1610927

PATIENT
  Sex: Female
  Weight: 52 kg

DRUGS (7)
  1. XOLAIR [Suspect]
     Active Substance: OMALIZUMAB
     Indication: ASTHMA
     Route: 058
     Dates: start: 2008
  2. FAMCICLOVIR. [Concomitant]
     Active Substance: FAMCICLOVIR
  3. LORAZEPAM. [Concomitant]
     Active Substance: LORAZEPAM
  4. DULERA [Concomitant]
     Active Substance: FORMOTEROL FUMARATE DIHYDRATE\MOMETASONE FUROATE
  5. AMITRIPTYLINE [Concomitant]
     Active Substance: AMITRIPTYLINE
  6. ALBUTEROL. [Concomitant]
     Active Substance: ALBUTEROL
  7. XOLAIR [Suspect]
     Active Substance: OMALIZUMAB
     Route: 058
     Dates: start: 20140506

REACTIONS (1)
  - Anovulatory cycle [Not Recovered/Not Resolved]

NARRATIVE: CASE EVENT DATE: 2012
